FAERS Safety Report 11536486 (Version 1)
Quarter: 2015Q3

REPORT INFORMATION
  Report Type: Spontaneous
  Country: DE (occurrence: DE)
  Receive Date: 20150922
  Receipt Date: 20150922
  Transmission Date: 20151125
  Serious: Yes (Hospitalization, Disabling)
  Sender: FDA-Public Use
  Company Number: DE-BAYER-2015-399871

PATIENT
  Age: 23 Year
  Sex: Female

DRUGS (1)
  1. JAYDESS [Suspect]
     Active Substance: LEVONORGESTREL
     Indication: CONTRACEPTION
     Dosage: 14 MCG/24HR, CONT
     Route: 015
     Dates: start: 20140603

REACTIONS (9)
  - Adnexa uteri mass [Recovered/Resolved]
  - Ruptured ectopic pregnancy [Recovered/Resolved]
  - Menorrhagia [Recovered/Resolved]
  - Abdominal pain [Recovered/Resolved]
  - Amenorrhoea [None]
  - Ectopic pregnancy with contraceptive device [Recovered/Resolved]
  - Salpingitis [Recovered/Resolved]
  - Abdominal pain lower [Recovered/Resolved]
  - Drug ineffective [None]

NARRATIVE: CASE EVENT DATE: 201406
